FAERS Safety Report 23096570 (Version 1)
Quarter: 2023Q4

REPORT INFORMATION
  Report Type: Spontaneous
  Country: US (occurrence: None)
  Receive Date: 20231019
  Receipt Date: 20231019
  Transmission Date: 20240110
  Serious: Yes (Hospitalization)
  Sender: FDA-Public Use
  Company Number: None

PATIENT
  Age: 32 Year
  Sex: Male
  Weight: 130 kg

DRUGS (1)
  1. HYDROCORTISONE SODIUM PHOSPHATE [Suspect]
     Active Substance: HYDROCORTISONE SODIUM PHOSPHATE
     Dosage: FREQUENCY : AS NEEDED;?
     Route: 041
     Dates: start: 20230207, end: 20230319

REACTIONS (3)
  - Mania [None]
  - Agitation [None]
  - Psychotic symptom [None]

NARRATIVE: CASE EVENT DATE: 20230207
